FAERS Safety Report 15247954 (Version 1)
Quarter: 2018Q3

REPORT INFORMATION
  Report Type: Spontaneous
  Country: US (occurrence: US)
  Receive Date: 20180714
  Receipt Date: 20180714
  Transmission Date: 20181010
  Serious: Yes (Disabling, Other)
  Sender: FDA-Public Use
  Company Number: None

PATIENT
  Age: 55 Year
  Sex: Female
  Weight: 63 kg

DRUGS (2)
  1. FLUTICASONE PROPIONATE NASAL SPRAY USP 50 MCG PER SPRAY [Suspect]
     Active Substance: FLUTICASONE PROPIONATE
     Indication: UPPER RESPIRATORY TRACT INFECTION
     Dosage: ?          QUANTITY:120 SPRAY(S);?
     Route: 055
     Dates: start: 20180103, end: 20180222
  2. FLUTICASONE PROPIONATE NASAL SPRAY USP 50 MCG PER SPRAY [Suspect]
     Active Substance: FLUTICASONE PROPIONATE
     Indication: HYPERSENSITIVITY
     Dosage: ?          QUANTITY:120 SPRAY(S);?
     Route: 055
     Dates: start: 20180103, end: 20180222

REACTIONS (5)
  - Product use issue [None]
  - Product contamination physical [None]
  - Haemoptysis [None]
  - Throat irritation [None]
  - Speech disorder [None]

NARRATIVE: CASE EVENT DATE: 20180222
